FAERS Safety Report 9965291 (Version 1)
Quarter: 2014Q1

REPORT INFORMATION
  Report Type: Report from Study
  Country: US (occurrence: US)
  Receive Date: 20140305
  Receipt Date: 20140305
  Transmission Date: 20141002
  Serious: No
  Sender: FDA-Public Use
  Company Number: US-ABBVIE-13P-163-1124993-00

PATIENT
  Age: 25 Year
  Sex: 0

DRUGS (7)
  1. HUMIRA [Suspect]
     Indication: PSORIASIS
     Dates: start: 201305
  2. ABILIFY [Concomitant]
     Indication: PRODUCT USED FOR UNKNOWN INDICATION
  3. LAMICTAL [Concomitant]
     Indication: PRODUCT USED FOR UNKNOWN INDICATION
  4. TOPAMAX [Concomitant]
     Indication: PRODUCT USED FOR UNKNOWN INDICATION
  5. BUSPAR [Concomitant]
     Indication: PRODUCT USED FOR UNKNOWN INDICATION
  6. LOPID [Concomitant]
     Indication: PRODUCT USED FOR UNKNOWN INDICATION
  7. LISINOPRIL [Concomitant]
     Indication: PRODUCT USED FOR UNKNOWN INDICATION

REACTIONS (4)
  - Somnolence [Not Recovered/Not Resolved]
  - Somnolence [Not Recovered/Not Resolved]
  - Injection site pain [Not Recovered/Not Resolved]
  - Muscle spasms [Recovered/Resolved]
